FAERS Safety Report 14941451 (Version 2)
Quarter: 2018Q3

REPORT INFORMATION
  Report Type: Spontaneous
  Country: US (occurrence: US)
  Receive Date: 20180526
  Receipt Date: 20180703
  Transmission Date: 20181010
  Serious: No
  Sender: FDA-Public Use
  Company Number: US-TEVA-2018-US-894232

PATIENT
  Sex: Male

DRUGS (2)
  1. TRAZODONE [Suspect]
     Active Substance: TRAZODONE HYDROCHLORIDE
     Indication: SLEEP DISORDER THERAPY
  2. TRAZODONE [Suspect]
     Active Substance: TRAZODONE HYDROCHLORIDE
     Indication: DEPRESSION
     Dates: start: 20180513, end: 20180513

REACTIONS (4)
  - Erectile dysfunction [Unknown]
  - Headache [Unknown]
  - Micturition urgency [Unknown]
  - Genital pain [Unknown]

NARRATIVE: CASE EVENT DATE: 20180513
